FAERS Safety Report 6110710-6 (Version None)
Quarter: 2009Q1

REPORT INFORMATION
  Report Type: 
  Country: None (occurrence: None)
  Receive Date: 20090309
  Receipt Date: 20090226
  Transmission Date: 20090719
  Serious: Yes (Other)
  Sender: FDA-Public Use
  Company Number: 2009AP000692

PATIENT
  Age: 83 Year
  Sex: Male

DRUGS (7)
  1. DORZOLAMIDE HYDROCHLORIDE [Suspect]
     Dosage: 1 GTTL BID; OPH
     Route: 047
     Dates: start: 20081204, end: 20081205
  2. RANITIDINE [Concomitant]
  3. ROSIGLITAZONE [Concomitant]
  4. OMEPRAZOLE [Concomitant]
  5. CELECOXIB [Concomitant]
  6. UNKNOWN [Concomitant]
  7. DORZOLAMIDE HYDROCHLORIDE [Suspect]

REACTIONS (1)
  - EYE SWELLING [None]
